FAERS Safety Report 12261756 (Version 1)
Quarter: 2016Q2

REPORT INFORMATION
  Report Type: Spontaneous
  Country: FR (occurrence: FR)
  Receive Date: 20160413
  Receipt Date: 20160413
  Transmission Date: 20160815
  Serious: Yes (Hospitalization)
  Sender: FDA-Public Use
  Company Number: FR-ROCHE-1739677

PATIENT
  Age: 72 Year
  Sex: Female

DRUGS (15)
  1. TAVANIC [Suspect]
     Active Substance: LEVOFLOXACIN
     Indication: INFECTION
     Route: 048
     Dates: start: 20151214, end: 20151215
  2. ATARAX [Concomitant]
     Active Substance: HYDROXYZINE\HYDROXYZINE HYDROCHLORIDE
     Dosage: IN THE MORNING, AT LUNCH, IN THE EVENING
     Route: 048
  3. AUGMENTIN [Concomitant]
     Active Substance: AMOXICILLIN\CLAVULANATE POTASSIUM
     Indication: INFECTION
     Route: 048
     Dates: start: 20151214, end: 20151215
  4. ZITHROMAX [Concomitant]
     Active Substance: AZITHROMYCIN DIHYDRATE
     Route: 065
     Dates: start: 20151026
  5. TAMIFLU [Suspect]
     Active Substance: OSELTAMIVIR PHOSPHATE
     Indication: INFECTION
     Route: 048
     Dates: start: 20151215, end: 20151216
  6. BRICANYL [Concomitant]
     Active Substance: TERBUTALINE SULFATE
     Dosage: LONG-TERM TREATMENT
     Route: 065
  7. LOVENOX [Concomitant]
     Active Substance: ENOXAPARIN SODIUM
     Indication: DEEP VEIN THROMBOSIS
     Route: 058
     Dates: start: 20151215, end: 20160210
  8. EUPHYLLINE (FRANCE) [Concomitant]
     Dosage: LONG-TERM TREATEMENT. MORNING AND EVENING
     Route: 048
  9. MIFLASONE [Concomitant]
     Active Substance: BECLOMETHASONE DIPROPIONATE
     Dosage: LONG-TERM TREATEMENT. MORNING AND EVENING
     Route: 055
  10. ATROVENT [Concomitant]
     Active Substance: IPRATROPIUM BROMIDE
     Dosage: LONG-TERM TREATMENT
     Route: 055
  11. PANOTILE [Concomitant]
     Dosage: LONG-TERM TREATMENT
     Route: 001
  12. ROVAMYCINE [Concomitant]
     Active Substance: SPIRAMYCIN
     Indication: INFECTION
     Route: 048
     Dates: start: 20151215, end: 20151218
  13. ROCEPHINE [Concomitant]
     Active Substance: CEFTRIAXONE SODIUM
     Indication: INFECTION
     Route: 065
     Dates: start: 20151215, end: 20151218
  14. FORADIL [Concomitant]
     Active Substance: FORMOTEROL FUMARATE
     Dosage: LONG-TERM TREATMENT. MORNING AND EVENING
     Route: 055
  15. INEXIUM [Concomitant]
     Active Substance: ESOMEPRAZOLE
     Dosage: IN THE EVENING
     Route: 048

REACTIONS (6)
  - Paraesthesia oral [Recovered/Resolved]
  - Oral discomfort [Recovered/Resolved]
  - Dysgeusia [Recovered/Resolved]
  - Headache [Recovered/Resolved]
  - Extrasystoles [Recovered/Resolved]
  - Paraesthesia [Recovered/Resolved]

NARRATIVE: CASE EVENT DATE: 20151215
